FAERS Safety Report 10826988 (Version 1)
Quarter: 2015Q1

REPORT INFORMATION
  Report Type: Spontaneous
  Country: IT (occurrence: None)
  Receive Date: 20150213
  Receipt Date: 20150213
  Transmission Date: 20150721
  Serious: Yes (Hospitalization)
  Sender: FDA-Public Use
  Company Number: 2014BI106847

PATIENT
  Age: 31 Year
  Sex: Female

DRUGS (3)
  1. TYSABRI [Suspect]
     Active Substance: NATALIZUMAB
     Indication: MULTIPLE SCLEROSIS
     Route: 042
     Dates: start: 20140917, end: 20141002
  2. DULOXETINE [Concomitant]
     Active Substance: DULOXETINE
  3. ARIANNA [Concomitant]
     Active Substance: ETHINYL ESTRADIOL\GESTODENE

REACTIONS (4)
  - Vertigo [None]
  - Loss of consciousness [None]
  - Transient ischaemic attack [None]
  - Visual impairment [None]

NARRATIVE: CASE EVENT DATE: 20141002
